FAERS Safety Report 18577109 (Version 1)
Quarter: 2020Q4

REPORT INFORMATION
  Report Type: Spontaneous
  Country: IT (occurrence: IT)
  Receive Date: 20201203
  Receipt Date: 20201203
  Transmission Date: 20210114
  Serious: Yes (Other)
  Sender: FDA-Public Use
  Company Number: IT-TOLMAR, INC.-20IT024218

PATIENT
  Age: 55 Year
  Sex: Male

DRUGS (1)
  1. ELIGARD [Suspect]
     Active Substance: LEUPROLIDE ACETATE
     Indication: PROSTATE CANCER
     Dosage: 11.25 MG, Q 3 MONTH
     Route: 065

REACTIONS (2)
  - Meningioma [Recovered/Resolved]
  - Anaplastic meningioma [Recovered/Resolved]
